FAERS Safety Report 8943496 (Version 2)
Quarter: 2013Q1

REPORT INFORMATION
  Report Type: Report from Study
  Country: GB (occurrence: GB)
  Receive Date: 20121203
  Receipt Date: 20130110
  Transmission Date: 20140127
  Serious: Yes (Disabling)
  Sender: FDA-Public Use
  Company Number: GB-GLAXOSMITHKLINE-B0833884C

PATIENT
  Age: 56 Year
  Sex: Female

DRUGS (5)
  1. OFATUMUMAB [Suspect]
     Indication: RICHTER^S SYNDROME
     Route: 042
     Dates: start: 20120905
  2. CYCLOPHOSPHAMIDE [Suspect]
     Indication: RICHTER^S SYNDROME
  3. VINCRISTINE [Suspect]
     Indication: RICHTER^S SYNDROME
  4. DOXORUBICIN [Suspect]
     Indication: RICHTER^S SYNDROME
  5. PREDNISOLONE [Concomitant]
     Indication: RICHTER^S SYNDROME

REACTIONS (1)
  - Febrile neutropenia [Recovered/Resolved]
